FAERS Safety Report 4597990-3 (Version None)
Quarter: 2005Q1

REPORT INFORMATION
  Report Type: 
  Country: None (occurrence: None)
  Receive Date: 20050208
  Receipt Date: 20031016
  Transmission Date: 20050727
  Serious: No
  Sender: FDA-Public Use
  Company Number: 03USA0036

PATIENT

DRUGS (1)
  1. GLIADEL [Suspect]

REACTIONS (1)
  - HAEMORRHAGE [None]
